FAERS Safety Report 16540918 (Version 2)
Quarter: 2019Q4

REPORT INFORMATION
  Report Type: Report from Study
  Country: US (occurrence: US)
  Receive Date: 20190708
  Receipt Date: 20191015
  Transmission Date: 20200122
  Serious: No
  Sender: FDA-Public Use
  Company Number: US-SA-2019SA183362

PATIENT
  Age: 68 Year
  Sex: Female

DRUGS (1)
  1. DUPILUMAB [Suspect]
     Active Substance: DUPILUMAB
     Indication: DERMATITIS ATOPIC
     Dosage: 300 MG, QOW
     Route: 058

REACTIONS (4)
  - Drug ineffective [Not Recovered/Not Resolved]
  - Product storage error [Unknown]
  - Pruritus [Not Recovered/Not Resolved]
  - Inappropriate schedule of product administration [Unknown]
